FAERS Safety Report 15029075 (Version 1)
Quarter: 2018Q2

REPORT INFORMATION
  Report Type: Spontaneous
  Country: AT (occurrence: AT)
  Receive Date: 20180619
  Receipt Date: 20180619
  Transmission Date: 20180711
  Serious: Yes (Other)
  Sender: FDA-Public Use
  Company Number: AT-AMGEN-AUTSP2018080361

PATIENT

DRUGS (11)
  1. PROLIA [Suspect]
     Active Substance: DENOSUMAB
     Indication: PRODUCT USED FOR UNKNOWN INDICATION
     Dosage: UNK
     Route: 065
  2. CARBAMAZEPINE. [Concomitant]
     Active Substance: CARBAMAZEPINE
     Indication: SIMPLE PARTIAL SEIZURES
     Dosage: UNK
  3. PROGRAF [Concomitant]
     Active Substance: TACROLIMUS\TACROLIMUS ANHYDROUS
     Dosage: UNK
  4. SUCRALAN [Concomitant]
     Dosage: UNK UNK, AS NECESSARY
  5. CALCIUM/VITAMIN D [Concomitant]
     Active Substance: CALCIUM\VITAMIN D
     Dosage: UNK
  6. MAGNESIUM VERLA [Concomitant]
     Active Substance: MAGNESIUM
     Dosage: UNK UNK, BID
  7. CALCIDURAN [Concomitant]
     Dosage: 1 DF, QD
  8. FORSTEO [Suspect]
     Active Substance: TERIPARATIDE
     Indication: PRODUCT USED FOR UNKNOWN INDICATION
     Dosage: UNK
     Route: 065
  9. MARCOUMAR [Concomitant]
     Active Substance: PHENPROCOUMON
     Indication: COAGULATION FACTOR VIII LEVEL INCREASED
     Dosage: UNK
     Route: 048
  10. PANTOLOC [Concomitant]
     Active Substance: PANTOPRAZOLE SODIUM
     Dosage: 40 UNK, UNK
  11. ROCALTROL [Concomitant]
     Active Substance: CALCITRIOL
     Dosage: 0.25 UNK, 2XQD

REACTIONS (2)
  - Parathyroid tumour benign [Unknown]
  - Bone density decreased [Unknown]
